FAERS Safety Report 16020506 (Version 5)
Quarter: 2023Q1

REPORT INFORMATION
  Report Type: Report from Study
  Country: ES (occurrence: ES)
  Receive Date: 20190301
  Receipt Date: 20230331
  Transmission Date: 20230418
  Serious: Yes (Death, Hospitalization, Other)
  Sender: FDA-Public Use
  Company Number: ES-CELLTRION INC.-2018ES020551

PATIENT

DRUGS (18)
  1. RITUXIMAB [Suspect]
     Active Substance: RITUXIMAB
     Indication: Diffuse large B-cell lymphoma
     Dosage: 375 MG/M2, CYCLIC (DAY1)
     Route: 042
     Dates: start: 20180404, end: 20180404
  2. PREDNISONE [Suspect]
     Active Substance: PREDNISONE
     Indication: Diffuse large B-cell lymphoma
     Dosage: 100 MG, CYCLIC DAYS 1-5
     Route: 048
     Dates: start: 20180404, end: 20180408
  3. VINCRISTINE SULFATE [Suspect]
     Active Substance: VINCRISTINE SULFATE
     Indication: Diffuse large B-cell lymphoma
     Dosage: 1.4 MG/M2, CYCLIC
     Route: 042
     Dates: start: 20180404, end: 20180404
  4. VINCRISTINE SULFATE [Suspect]
     Active Substance: VINCRISTINE SULFATE
     Dosage: 4 MG/M2, CYCLIC
     Route: 042
     Dates: start: 20180404, end: 20180404
  5. DOXORUBICIN HYDROCHLORIDE [Suspect]
     Active Substance: DOXORUBICIN HYDROCHLORIDE
     Indication: Diffuse large B-cell lymphoma
     Dosage: 50 MG/M2, CYCLIC DAY 1
     Route: 042
     Dates: start: 20180404, end: 20180404
  6. CYCLOPHOSPHAMIDE [Suspect]
     Active Substance: CYCLOPHOSPHAMIDE
     Indication: Diffuse large B-cell lymphoma
     Dosage: 750 MG/M2, DAY 1
     Route: 042
     Dates: start: 20180404, end: 20180404
  7. AVADOMIDE [Suspect]
     Active Substance: AVADOMIDE
     Indication: Diffuse large B-cell lymphoma
     Dosage: 2 MG, CYCLIC (DAYS 1-5 AND 8-12 FOR 10/21 DAYS)
     Route: 048
     Dates: start: 20180404, end: 20180408
  8. AVADOMIDE [Suspect]
     Active Substance: AVADOMIDE
     Indication: Diffuse large B-cell lymphoma
     Dosage: 2 MG, CYCLIC (DAYS 1-5 AND 8-12 FOR 10/21 DAYS)
     Route: 048
     Dates: start: 20180404, end: 20180408
  9. SULFAMETHOXAZOLE\TRIMETHOPRIM [Concomitant]
     Active Substance: SULFAMETHOXAZOLE\TRIMETHOPRIM
     Indication: Infection prophylaxis
     Dosage: UNK
     Route: 048
     Dates: start: 20180405
  10. ALLOPURINOL [Concomitant]
     Active Substance: ALLOPURINOL
     Indication: Prophylaxis
     Dosage: 300 MG, 1 DAY
     Route: 048
     Dates: start: 20180405
  11. ONDANSETRON [Concomitant]
     Active Substance: ONDANSETRON
     Indication: Prophylaxis of nausea and vomiting
     Dosage: 24 MG, 3X/DAY
     Route: 042
     Dates: start: 20180404, end: 20180406
  12. ONDANSETRON [Concomitant]
     Active Substance: ONDANSETRON
     Dosage: 24 MG, 3X/DAY
     Route: 042
     Dates: start: 20180404, end: 20180406
  13. ZOLPIDEM [Concomitant]
     Active Substance: ZOLPIDEM TARTRATE
     Indication: Prophylaxis
     Dosage: 10 MG, 1X/DAY
     Route: 048
     Dates: start: 20180323
  14. HYDROCORTISONE SODIUM PHOSPHATE [Concomitant]
     Active Substance: HYDROCORTISONE SODIUM PHOSPHATE
     Indication: Prophylaxis of nausea and vomiting
     Dosage: 10 MG, (TOTAL) SINGLE
     Route: 042
     Dates: start: 20180404, end: 20180404
  15. HYDROCORTISONE SODIUM PHOSPHATE [Concomitant]
     Active Substance: HYDROCORTISONE SODIUM PHOSPHATE
     Indication: Erythema
     Dosage: UNK
  16. HYDROCORTISONE SODIUM PHOSPHATE [Concomitant]
     Active Substance: HYDROCORTISONE SODIUM PHOSPHATE
     Dosage: UNK (ONCE)
     Route: 042
     Dates: start: 20180404, end: 20180404
  17. NEULASTA [Concomitant]
     Active Substance: PEGFILGRASTIM
     Indication: Infection prophylaxis
     Dosage: UNK
     Dates: start: 20180405
  18. NEULASTA [Concomitant]
     Active Substance: PEGFILGRASTIM
     Dosage: AS PER PROTOCOL, UNK
     Dates: start: 20180405

REACTIONS (6)
  - Neoplasm progression [Fatal]
  - Intestinal obstruction [Fatal]
  - Respiratory failure [Fatal]
  - Pneumonia [Not Recovered/Not Resolved]
  - Product use in unapproved indication [Unknown]
  - Off label use [Unknown]

NARRATIVE: CASE EVENT DATE: 20180404
